FAERS Safety Report 8206107-5 (Version None)
Quarter: 2012Q1

REPORT INFORMATION
  Report Type: 
  Country: None (occurrence: None)
  Receive Date: 20120313
  Receipt Date: 20120302
  Transmission Date: 20120608
  Serious: Yes (Hospitalization)
  Sender: FDA-Public Use
  Company Number: SE-FRI-1000021521

PATIENT
  Sex: Female

DRUGS (8)
  1. ESCITALOPRAM [Suspect]
     Indication: DEPRESSION
     Dosage: 15 MG
     Route: 048
     Dates: start: 20090825, end: 20100531
  2. LEVOTHYROXINE SODIUM [Concomitant]
     Route: 048
  3. IMOVANE [Concomitant]
     Route: 048
  4. PANDEMRIX [Suspect]
     Indication: IMMUNISATION
     Route: 050
     Dates: start: 20091229, end: 20091229
  5. ALMOGRAN [Concomitant]
     Route: 048
  6. TREO [Concomitant]
     Route: 048
  7. ACETAMINOPHEN W/ CODEINE [Concomitant]
     Route: 048
  8. NAPROSYN [Concomitant]
     Route: 048

REACTIONS (1)
  - AMYOTROPHIC LATERAL SCLEROSIS [None]
